FAERS Safety Report 7962185-X (Version None)
Quarter: 2011Q4

REPORT INFORMATION
  Report Type: 
  Country: None (occurrence: None)
  Receive Date: 20111207
  Receipt Date: 20111126
  Transmission Date: 20120403
  Serious: Yes (Other)
  Sender: FDA-Public Use
  Company Number: PHHY2011BR104535

PATIENT
  Sex: Female

DRUGS (1)
  1. DIOVAN HCT [Suspect]
     Dosage: 1 DF (160/12.5MG), UNK

REACTIONS (7)
  - HYPOTHYROIDISM [None]
  - POSTPARTUM HYPOPITUITARISM [None]
  - HYPOPITUITARISM [None]
  - MATERNAL EXPOSURE DURING PREGNANCY [None]
  - BLOOD POTASSIUM DECREASED [None]
  - BLOOD PRESSURE INADEQUATELY CONTROLLED [None]
  - POLLAKIURIA [None]
